FAERS Safety Report 8870967 (Version 1)
Quarter: 2012Q4

REPORT INFORMATION
  Report Type: 
  Country: US (occurrence: US)
  Receive Date: 20121026
  Receipt Date: 20121026
  Transmission Date: 20130627
  Serious: No
  Sender: FDA-Public Use
  Company Number: US-AMGEN-USASP2012046542

PATIENT
  Sex: Female

DRUGS (8)
  1. ENBREL [Suspect]
     Indication: PRODUCT USED FOR UNKNOWN INDICATION
     Dosage: UNK
  2. METHOTREXATE [Suspect]
     Dosage: 2.5 mg, UNK
  3. LEUCOVORINE CALCIUM [Concomitant]
     Dosage: 10 mg, UNK
  4. OCELLA [Concomitant]
     Dosage: 3-0.03 mg
  5. VITAMIN D /00107901/ [Concomitant]
     Dosage: 1000 units
  6. ABILIFY [Concomitant]
     Dosage: 5 mg, UNK
  7. VITAMIN B 12 [Concomitant]
     Dosage: 100 mcg
  8. VYVANSE [Concomitant]

REACTIONS (1)
  - Injection site reaction [Unknown]
